FAERS Safety Report 23473582 (Version 2)
Quarter: 2024Q3

REPORT INFORMATION
  Report Type: Spontaneous
  Country: FR (occurrence: FR)
  Receive Date: 20240203
  Receipt Date: 20240826
  Transmission Date: 20241017
  Serious: Yes (Other)
  Sender: IPSEN
  Company Number: FR-Korea IPSEN-2024-01401

PATIENT
  Age: 52 Year
  Sex: Female
  Weight: 51 kg

DRUGS (9)
  1. DYSPORT [Suspect]
     Active Substance: ABOBOTULINUMTOXINA
     Indication: Multiple sclerosis
     Dosage: IN UPPER LIMB: PECTORALIS MAJOR, BRACHIORADIALIS MUSCLE , FLEXOR CARPI ULNARIS MUSCLE, FLEXOR CARPI
     Route: 030
     Dates: start: 20230510, end: 20230510
  2. DYSPORT [Suspect]
     Active Substance: ABOBOTULINUMTOXINA
     Dosage: INJECTION AS FOLLOWED : IN UPPER LIMB : PECTORALIS MAJOR = 250 UI, BRACHIORADIALIS = 200 UI, FLEXOR
     Route: 051
     Dates: start: 20230922, end: 20230922
  3. DYSPORT [Suspect]
     Active Substance: ABOBOTULINUMTOXINA
     Dosage: IN UPPER LIMB: BRACHIALIS ANTICUS=150 IU, BRACHIORADIALIS MUSCLE = 200IU, FLEXOR CARPI RADIALIS MUSC
     Route: 051
     Dates: start: 20231220, end: 20231220
  4. AMLODIPINE BESYLATE [Concomitant]
     Active Substance: AMLODIPINE BESYLATE
     Dosage: 5 MG IN THE MORNING
  5. REBIF [Concomitant]
     Active Substance: INTERFERON BETA-1A
  6. KARDEGIC [Concomitant]
     Active Substance: ASPIRIN DL-LYSINE
     Dosage: 75 MG PER DAY
  7. AMITRIPTYLINE HYDROCHLORIDE [Concomitant]
     Active Substance: AMITRIPTYLINE HYDROCHLORIDE
     Indication: Trigeminal neuralgia
     Dosage: 3 DROPS AT BED TIME PER DAY
  8. PANTOPRAZOLE [Concomitant]
     Active Substance: PANTOPRAZOLE
     Indication: Trigeminal neuralgia
  9. SOLU-MEDROL [Concomitant]
     Active Substance: METHYLPREDNISOLONE SODIUM SUCCINATE
     Indication: Multiple sclerosis

REACTIONS (6)
  - Aspiration [Recovered/Resolved with Sequelae]
  - Gait disturbance [Recovered/Resolved with Sequelae]
  - Muscular weakness [Recovered/Resolved with Sequelae]
  - Muscular weakness [Recovered/Resolved with Sequelae]
  - Impaired driving ability [Recovered/Resolved with Sequelae]
  - Off label use [Unknown]

NARRATIVE: CASE EVENT DATE: 20230601
